FAERS Safety Report 18595280 (Version 1)
Quarter: 2020Q4

REPORT INFORMATION
  Report Type: Spontaneous
  Country: US (occurrence: US)
  Receive Date: 20201209
  Receipt Date: 20201209
  Transmission Date: 20210114
  Serious: Yes (Hospitalization, Other)
  Sender: FDA-Public Use
  Company Number: US-GLAXOSMITHKLINE-US2020AMR240560

PATIENT
  Sex: Female
  Weight: 116.2 kg

DRUGS (3)
  1. TIKOSYN [Suspect]
     Active Substance: DOFETILIDE
     Indication: PRODUCT USED FOR UNKNOWN INDICATION
     Dosage: 250 ?G
     Dates: start: 20201124
  2. ALLOPURINOL. [Suspect]
     Active Substance: ALLOPURINOL
     Indication: PRODUCT USED FOR UNKNOWN INDICATION
     Dosage: UNK
  3. BUPROPION HYDROCHLORIDE XL [Suspect]
     Active Substance: BUPROPION HYDROCHLORIDE
     Indication: DEPRESSION
     Dosage: 300 MG

REACTIONS (11)
  - Decreased appetite [Unknown]
  - Gait disturbance [Unknown]
  - Pancreatic carcinoma metastatic [Unknown]
  - Weight decreased [Unknown]
  - Hepatic cancer [Unknown]
  - Gastric cancer [Unknown]
  - Cardioversion [Unknown]
  - Pruritus [Not Recovered/Not Resolved]
  - Cardiac failure congestive [Not Recovered/Not Resolved]
  - Nausea [Not Recovered/Not Resolved]
  - Atrial fibrillation [Unknown]
